FAERS Safety Report 17499489 (Version 1)
Quarter: 2020Q1

REPORT INFORMATION
  Report Type: Report from Study
  Country: CO (occurrence: CO)
  Receive Date: 20200305
  Receipt Date: 20200305
  Transmission Date: 20200409
  Serious: Yes (Hospitalization)
  Sender: FDA-Public Use
  Company Number: CO-ROCHE-2526209

PATIENT
  Sex: Female

DRUGS (1)
  1. CELLCEPT [Suspect]
     Active Substance: MYCOPHENOLATE MOFETIL\MYCOPHENOLATE MOFETIL HYDROCHLORIDE
     Indication: PRODUCT USED FOR UNKNOWN INDICATION
     Route: 065

REACTIONS (9)
  - Malaise [Unknown]
  - Blood creatinine increased [Unknown]
  - Immunodeficiency [Unknown]
  - Gastroenteritis [Unknown]
  - Headache [Unknown]
  - Cough [Unknown]
  - Feeling abnormal [Unknown]
  - Hypertension [Unknown]
  - Diarrhoea [Recovered/Resolved]
